FAERS Safety Report 6418097-6 (Version None)
Quarter: 2009Q4

REPORT INFORMATION
  Report Type: 
  Country: None (occurrence: None)
  Receive Date: 20091026
  Receipt Date: 20091013
  Transmission Date: 20100525
  Serious: Yes (Hospitalization, Other)
  Sender: FDA-Public Use
  Company Number: ADR38362009

PATIENT
  Age: 85 Year
  Sex: Female

DRUGS (3)
  1. SIMVASTATIN [Suspect]
     Indication: DYSLIPIDAEMIA
     Dosage: 40 MG, ORAL
     Route: 048
     Dates: start: 20040101, end: 20080401
  2. LANSOPRAZOLE [Concomitant]
  3. METFORMIN HCL [Concomitant]

REACTIONS (6)
  - ASPARTATE AMINOTRANSFERASE INCREASED [None]
  - BLOOD CREATINE PHOSPHOKINASE INCREASED [None]
  - GAIT DISTURBANCE [None]
  - MALAISE [None]
  - MUSCULAR WEAKNESS [None]
  - MYOSITIS [None]
